FAERS Safety Report 7510679-3 (Version None)
Quarter: 2011Q2

REPORT INFORMATION
  Report Type: 
  Country: None (occurrence: None)
  Receive Date: 20110530
  Receipt Date: 20110520
  Transmission Date: 20111010
  Serious: Yes (Hospitalization)
  Sender: FDA-Public Use
  Company Number: US-BRISTOL-MYERS SQUIBB COMPANY-15736606

PATIENT
  Age: 57 Year
  Sex: Male
  Weight: 71 kg

DRUGS (7)
  1. ZANTAC [Concomitant]
     Indication: GASTROOESOPHAGEAL REFLUX DISEASE
  2. PREVACID [Concomitant]
  3. LACTULOSE [Concomitant]
     Indication: CONSTIPATION
     Dosage: 1 DF: 2 TSP PER 2HOURS
  4. CETUXIMAB [Suspect]
     Indication: TONGUE NEOPLASM MALIGNANT STAGE UNSPECIFIED
     Dosage: LAST DOSE:03MAY2011
     Route: 042
  5. SPRYCEL [Suspect]
     Indication: TONGUE NEOPLASM MALIGNANT STAGE UNSPECIFIED
     Route: 048
  6. REGLAN [Concomitant]
  7. CISPLATIN [Suspect]
     Indication: TONGUE NEOPLASM MALIGNANT STAGE UNSPECIFIED
     Dosage: LAST DOSE:03MAY2011
     Route: 042

REACTIONS (6)
  - VOMITING [None]
  - OROPHARYNGEAL PAIN [None]
  - NAUSEA [None]
  - PROCEDURAL COMPLICATION [None]
  - CONSTIPATION [None]
  - DEHYDRATION [None]
